FAERS Safety Report 4293844-0 (Version None)
Quarter: 2004Q1

REPORT INFORMATION
  Report Type: 
  Country: None (occurrence: None)
  Receive Date: 20040212
  Receipt Date: 20040205
  Transmission Date: 20041129
  Serious: Yes (Death, Life-Threatening, Hospitalization)
  Sender: FDA-Public Use
  Company Number: PHRM2004FR00739

PATIENT
  Age: 40 Year
  Sex: Female

DRUGS (3)
  1. NEORAL [Suspect]
     Route: 048
     Dates: start: 20030922, end: 20031104
  2. PROGRAF [Suspect]
     Route: 048
     Dates: start: 20031105, end: 20031119
  3. CYMEVAN [Suspect]
     Route: 042
     Dates: start: 20031114

REACTIONS (12)
  - CONVULSION [None]
  - CYTOMEGALOVIRUS TEST POSITIVE [None]
  - GRAFT VERSUS HOST DISEASE [None]
  - HAEMOLYTIC ANAEMIA [None]
  - HAEMOLYTIC URAEMIC SYNDROME [None]
  - LUNG DISORDER [None]
  - PYREXIA [None]
  - RASH GENERALISED [None]
  - RED BLOOD CELL SCHISTOCYTES PRESENT [None]
  - THROMBOCYTOPENIA [None]
  - THROMBOTIC MICROANGIOPATHY [None]
  - URINARY TRACT INFECTION [None]
